FAERS Safety Report 17705620 (Version 1)
Quarter: 2020Q2

REPORT INFORMATION
  Report Type: Spontaneous
  Country: GB (occurrence: GB)
  Receive Date: 20200424
  Receipt Date: 20200424
  Transmission Date: 20200714
  Serious: Yes (Other)
  Sender: FDA-Public Use
  Company Number: GB-PFIZER INC-2020162731

PATIENT
  Age: 40 Year
  Sex: Female
  Weight: 60 kg

DRUGS (10)
  1. IBUPROFEN. [Suspect]
     Active Substance: IBUPROFEN
     Dosage: 400 MG
  2. VITAMIN B [Concomitant]
     Active Substance: VITAMIN B
     Dosage: 1 DF
     Dates: start: 20191129, end: 20191203
  3. CEFALEXIN [Concomitant]
     Active Substance: CEPHALEXIN
     Dosage: 3 DF, 1X/DAY (07:00-1 CAPSULES)(12:00-1 CAPSULES(17:00-1 CAPSULES)
     Dates: start: 20191129, end: 20191203
  4. PARACETAMOL [Concomitant]
     Active Substance: ACETAMINOPHEN
     Dosage: UNK UNK, 4X/DAY UNK (ONE TO TWO TO BE TAKEN FOUR TIMES DAILY)
     Dates: start: 20200103, end: 20200117
  5. THIAMINE. [Concomitant]
     Active Substance: THIAMINE
     Dosage: 100 MG
     Dates: start: 20200123
  6. COCODAMOL [Concomitant]
     Active Substance: ACETAMINOPHEN\CODEINE PHOSPHATE
     Dosage: UNK (1-2)
     Dates: start: 20200124, end: 20200131
  7. VITAMINS NOS [Concomitant]
     Active Substance: VITAMINS
     Dosage: 1 DF, 1X/DAY
     Dates: start: 20191127, end: 20191205
  8. LANSOPRAZOLE. [Concomitant]
     Active Substance: LANSOPRAZOLE
     Dosage: 1 DF, 1X/DAY
     Dates: start: 20191016
  9. ACAMPROSATE CALCIUM. [Concomitant]
     Active Substance: ACAMPROSATE CALCIUM
     Dosage: 6 DF, 1X/DAY
     Dates: start: 20191108, end: 20191126
  10. SERTRALINE [Concomitant]
     Active Substance: SERTRALINE HYDROCHLORIDE
     Dosage: 2 DF, 1X/DAY
     Dates: start: 20191016

REACTIONS (1)
  - Gastric ulcer [Not Recovered/Not Resolved]
